FAERS Safety Report 4702168-6 (Version None)
Quarter: 2005Q2

REPORT INFORMATION
  Report Type: 
  Country: None (occurrence: None)
  Receive Date: 20050629
  Receipt Date: 20050601
  Transmission Date: 20051028
  Serious: Yes (Death, Life-Threatening, Hospitalization)
  Sender: FDA-Public Use
  Company Number: 200515101GDDC

PATIENT
  Age: 74 Year
  Sex: Male
  Weight: 85.45 kg

DRUGS (7)
  1. DOCETAXEL [Suspect]
     Indication: NON-SMALL CELL LUNG CANCER
     Route: 042
     Dates: start: 20050308, end: 20050429
  2. GEMCITABINE [Suspect]
     Indication: NON-SMALL CELL LUNG CANCER
     Route: 042
     Dates: start: 20050308, end: 20050429
  3. LIPITOR [Concomitant]
     Indication: BLOOD CHOLESTEROL ABNORMAL
     Dates: start: 20000101, end: 20050401
  4. NEXIUM [Concomitant]
     Indication: GASTROOESOPHAGEAL REFLUX DISEASE
     Dates: start: 20000101, end: 20050509
  5. ASPIRIN [Concomitant]
     Indication: PROPHYLAXIS
     Dates: start: 20040101, end: 20050509
  6. DEXAMETHASONE [Concomitant]
     Indication: PREMEDICATION
     Dates: start: 20050317, end: 20050505
  7. COMPAZINE [Concomitant]
     Indication: NAUSEA
     Dates: start: 20050308, end: 20050509

REACTIONS (10)
  - CLOSTRIDIUM COLITIS [None]
  - CONFUSIONAL STATE [None]
  - DEHYDRATION [None]
  - DIARRHOEA [None]
  - PERFORMANCE STATUS DECREASED [None]
  - PNEUMONIA [None]
  - PNEUMONIA ASPIRATION [None]
  - PNEUMONITIS [None]
  - RESPIRATORY DISORDER [None]
  - RESPIRATORY FAILURE [None]
